FAERS Safety Report 14549335 (Version 3)
Quarter: 2018Q4

REPORT INFORMATION
  Report Type: Spontaneous
  Country: DE (occurrence: DE)
  Receive Date: 20180219
  Receipt Date: 20181210
  Transmission Date: 20190204
  Serious: Yes (Other)
  Sender: FDA-Public Use
  Company Number: DE-ACCORD-063352

PATIENT
  Age: 83 Year
  Sex: Female
  Weight: 76 kg

DRUGS (6)
  1. DEXAMETHASONE. [Concomitant]
     Active Substance: DEXAMETHASONE
     Indication: PREMEDICATION
     Dosage: PREMEDICATION 30?MINUTES BEFORE?CHEMOTHERAPY
     Route: 042
  2. CARBOPLATIN ACCORD [Suspect]
     Active Substance: CARBOPLATIN
     Indication: ADENOCARCINOMA
     Dosage: AUC 5
     Route: 042
     Dates: start: 20180122
  3. GRANISETRON [Concomitant]
     Active Substance: GRANISETRON
     Indication: PREMEDICATION
     Dosage: PREMEDICATION 30?MINUTES BEFORE?CARBOPLATIN-INFUSION
     Route: 042
  4. PACLITAXEL ACCORD [Concomitant]
     Active Substance: PACLITAXEL
     Indication: MALIGNANT NEOPLASM OF UNKNOWN PRIMARY SITE
     Dosage: STRENGTH: 300 MG
     Route: 042
  5. DIMETINDENE [Concomitant]
     Active Substance: DIMETHINDENE
     Indication: PREMEDICATION
     Dosage: PREMEDICATION 30?MINUTES BEFORE?CARBOPLATIN-INFUSION
     Route: 042
  6. RANITIDINE. [Concomitant]
     Active Substance: RANITIDINE
     Indication: PREMEDICATION
     Dosage: PREMEDICATION 30?MINUTES BEFORE?CARBOPLATIN-INFUSION
     Route: 042

REACTIONS (3)
  - Sensation of foreign body [Recovered/Resolved]
  - Respiratory distress [Recovered/Resolved]
  - Product lot number issue [Unknown]

NARRATIVE: CASE EVENT DATE: 20180122
